FAERS Safety Report 5661644-2 (Version None)
Quarter: 2008Q1

REPORT INFORMATION
  Report Type: 
  Country: None (occurrence: None)
  Receive Date: 20080312
  Receipt Date: 20080310
  Transmission Date: 20080703
  Serious: Yes (Hospitalization, Other)
  Sender: FDA-Public Use
  Company Number: JP-BRISTOL-MYERS SQUIBB COMPANY-14108518

PATIENT
  Age: 17 Year
  Sex: Male

DRUGS (8)
  1. CYCLOPHOSPHAMIDE [Suspect]
     Indication: ACUTE BIPHENOTYPIC LEUKAEMIA
  2. METHOTREXATE [Suspect]
     Indication: PROPHYLAXIS
  3. CYTARABINE [Suspect]
     Indication: ACUTE BIPHENOTYPIC LEUKAEMIA
  4. CYCLOSPORINE [Suspect]
     Indication: PROPHYLAXIS
     Dosage: DOSE INCREASED TO 100 MG/DAY.
  5. COLONY STIMULATING FACTOR [Suspect]
  6. TOSUFLOXACIN [Suspect]
  7. FLUCONAZOLE [Suspect]
  8. CO-TRIMOXAZOLE [Suspect]

REACTIONS (3)
  - ACUTE GRAFT VERSUS HOST DISEASE [None]
  - LIVER INJURY [None]
  - NOCARDIOSIS [None]
